FAERS Safety Report 9687258 (Version 1)
Quarter: 2013Q4

REPORT INFORMATION
  Report Type: Spontaneous
  Country: US (occurrence: US)
  Receive Date: 20131114
  Receipt Date: 20131114
  Transmission Date: 20140711
  Serious: No
  Sender: FDA-Public Use
  Company Number: US-B.I. PHARMACEUTICALS,INC./RIDGEFIELD-2013-BI-35617BP

PATIENT
  Age: 55 Year
  Sex: Female

DRUGS (1)
  1. COMBIVENT [Suspect]
     Dosage: DOSE PER APPLICATION: 40 MCG / 200 MCG; DAILY DOSE: 80 MCG / 400 MCG
     Route: 055
     Dates: start: 201308

REACTIONS (1)
  - Drug administration error [Not Recovered/Not Resolved]
